FAERS Safety Report 10267116 (Version 2)
Quarter: 2014Q2

REPORT INFORMATION
  Report Type: Spontaneous
  Country: US (occurrence: US)
  Receive Date: 20140630
  Receipt Date: 20140630
  Transmission Date: 20141212
  Serious: Yes (Hospitalization, Other)
  Sender: FDA-Public Use
  Company Number: US-JNJFOC-20140514484

PATIENT
  Age: 0 Day
  Sex: Male

DRUGS (7)
  1. MOTRIN IB [Suspect]
     Indication: HEADACHE
     Route: 064
     Dates: start: 20140115
  2. TRUVADA [Suspect]
     Indication: HIV INFECTION
     Route: 064
     Dates: start: 20120223
  3. LEVETIRACETAM [Suspect]
     Indication: CONVULSION
     Route: 064
     Dates: start: 20120217
  4. ALEVE [Suspect]
     Indication: HEADACHE
     Route: 064
     Dates: start: 20130815
  5. DARUNAVIR [Suspect]
     Indication: HIV INFECTION
     Route: 064
     Dates: start: 20120223
  6. COBICISTAT [Suspect]
     Indication: HIV INFECTION
     Route: 064
     Dates: start: 20120223
  7. INSULIN [Suspect]
     Indication: TYPE 1 DIABETES MELLITUS
     Route: 064
     Dates: start: 20130815

REACTIONS (2)
  - Premature baby [Unknown]
  - Foetal exposure during pregnancy [Recovered/Resolved]
